FAERS Safety Report 5332318-2 (Version None)
Quarter: 2007Q2

REPORT INFORMATION
  Report Type: 
  Country: None (occurrence: None)
  Receive Date: 20070521
  Receipt Date: 20070521
  Transmission Date: 20071010
  Serious: Yes (Other)
  Sender: FDA-Public Use
  Company Number: None

PATIENT
  Sex: Male
  Weight: 135.1719 kg

DRUGS (1)
  1. FUZEON [Suspect]
     Indication: HIV INFECTION
     Dosage: 90 MG BID SQ
     Route: 058
     Dates: start: 20040101, end: 20070126

REACTIONS (3)
  - INJECTION SITE ATROPHY [None]
  - INJECTION SITE DISCHARGE [None]
  - LIPODYSTROPHY ACQUIRED [None]
